FAERS Safety Report 9358393 (Version 1)
Quarter: 2013Q2

REPORT INFORMATION
  Report Type: Spontaneous
  Country: FR (occurrence: FR)
  Receive Date: 20130620
  Receipt Date: 20130620
  Transmission Date: 20140414
  Serious: Yes (Other)
  Sender: FDA-Public Use
  Company Number: FR-ABBOTT-13P-056-1106054-00

PATIENT
  Age: 39 Year
  Sex: Female

DRUGS (7)
  1. KALETRA [Suspect]
     Indication: HIV INFECTION
     Dates: start: 20130307
  2. ATACAND [Suspect]
     Indication: HYPERTENSION
     Dates: start: 20130110, end: 20130118
  3. AMLOR [Suspect]
     Indication: HYPERTENSION
     Dates: start: 20130110, end: 20130118
  4. ATRIPLA [Suspect]
     Indication: HIV INFECTION
     Dates: start: 20110510, end: 20130306
  5. TRUVADA [Suspect]
     Indication: HIV INFECTION
     Dates: start: 20130307
  6. NICARDIPINE [Concomitant]
     Indication: HYPERTENSION
     Dates: start: 20130119
  7. RHOPHYLAC [Concomitant]
     Indication: PRODUCT USED FOR UNKNOWN INDICATION
     Dates: start: 20130222, end: 20130222

REACTIONS (3)
  - Placenta praevia [Unknown]
  - Gestational diabetes [Unknown]
  - Exposure during pregnancy [None]
